FAERS Safety Report 5153300-4 (Version None)
Quarter: 2006Q4

REPORT INFORMATION
  Report Type: 
  Country: None (occurrence: None)
  Receive Date: 20061116
  Receipt Date: 20061116
  Transmission Date: 20070319
  Serious: Yes (Life-Threatening)
  Sender: FDA-Public Use
  Company Number: None

PATIENT

DRUGS (1)
  1. PENICILLIN [Suspect]

REACTIONS (6)
  - BURNING SENSATION [None]
  - CONVULSION [None]
  - DYSPNOEA [None]
  - EYE ROLLING [None]
  - SYNCOPE [None]
  - TUNNEL VISION [None]
